FAERS Safety Report 18584917 (Version 1)
Quarter: 2020Q4

REPORT INFORMATION
  Report Type: Spontaneous
  Country: US (occurrence: US)
  Receive Date: 20201205
  Receipt Date: 20201205
  Transmission Date: 20210114
  Serious: No
  Sender: FDA-Public Use
  Company Number: None

PATIENT
  Age: 69 Year
  Sex: Female
  Weight: 90 kg

DRUGS (1)
  1. BAMLANIVIMAB. [Suspect]
     Active Substance: BAMLANIVIMAB
     Indication: COVID-19
     Route: 017

REACTIONS (5)
  - Nausea [None]
  - Infusion related reaction [None]
  - Communication disorder [None]
  - Hypotension [None]
  - Confusional state [None]

NARRATIVE: CASE EVENT DATE: 20201205
